FAERS Safety Report 10459124 (Version 1)
Quarter: 2014Q3

REPORT INFORMATION
  Report Type: Spontaneous
  Country: IT (occurrence: IT)
  Receive Date: 20140917
  Receipt Date: 20140917
  Transmission Date: 20150326
  Serious: Yes (Hospitalization, Other)
  Sender: FDA-Public Use
  Company Number: IT-TEVA-508367ISR

PATIENT
  Age: 65 Year
  Sex: Female

DRUGS (1)
  1. ALENDRONIC ACID [Suspect]
     Active Substance: ALENDRONIC ACID
     Route: 065
     Dates: start: 2004, end: 2010

REACTIONS (2)
  - Atypical femur fracture [Recovered/Resolved]
  - Pseudarthrosis [Recovered/Resolved]

NARRATIVE: CASE EVENT DATE: 2010
